FAERS Safety Report 7029751-X (Version None)
Quarter: 2010Q4

REPORT INFORMATION
  Report Type: 
  Country: None (occurrence: None)
  Receive Date: 20101005
  Receipt Date: 20101005
  Transmission Date: 20110411
  Serious: Yes (Other)
  Sender: FDA-Public Use
  Company Number: None

PATIENT
  Sex: Female
  Weight: 40.3701 kg

DRUGS (1)
  1. ATUSS DS SUS ATLEY PHAR [Suspect]
     Dosage: 1/2 TSP EVERY 12 HOURS PO
     Route: 048
     Dates: start: 20100924, end: 20100926

REACTIONS (2)
  - ABDOMINAL PAIN UPPER [None]
  - DRUG HYPERSENSITIVITY [None]
